FAERS Safety Report 9742195 (Version 4)
Quarter: 2014Q2

REPORT INFORMATION
  Report Type: Report from Study
  Country: NL (occurrence: NL)
  Receive Date: 20131210
  Receipt Date: 20140519
  Transmission Date: 20141212
  Serious: Yes (Hospitalization)
  Sender: FDA-Public Use
  Company Number: NL-ELI_LILLY_AND_COMPANY-NL201309004627

PATIENT
  Age: 73 Year
  Sex: Female
  Weight: 63 kg

DRUGS (11)
  1. NECITUMUMAB (11F8) (LY3012211) [Suspect]
     Indication: NON-SMALL CELL LUNG CANCER
     Dosage: 800 MG, DAYS 1 AND 8 OF EVERY 3 WEEK CYCLE
     Route: 042
     Dates: start: 20130731, end: 20130904
  2. GEMCITABINE HYDROCHLORIDE [Suspect]
     Indication: NON-SMALL CELL LUNG CANCER
     Dosage: 1250 MG/M2, DAYS 1 AND 8 OF EVERY 3 WEEK CYCLE
     Route: 042
     Dates: start: 20130731, end: 20130904
  3. CISPLATIN [Suspect]
     Indication: NON-SMALL CELL LUNG CANCER
     Dosage: 75 MG, DAYS 1 OF EVERY 3 WEEK CYCLE
     Route: 042
     Dates: start: 20130731, end: 20130828
  4. FENTANYL [Concomitant]
     Indication: PAIN
     Dosage: UNK
     Dates: start: 20130723, end: 20130911
  5. LACTULOSE [Concomitant]
     Indication: CONSTIPATION
     Dosage: UNK
     Dates: start: 20130717, end: 20130908
  6. PARACETAMOL [Concomitant]
     Indication: PAIN
     Dosage: UNK
     Dates: start: 20130615, end: 20130906
  7. ATORVASTATIN [Concomitant]
     Indication: BLOOD CHOLESTEROL INCREASED
     Dosage: UNK
     Dates: start: 2003
  8. ONDANSETRON [Concomitant]
     Indication: PREMEDICATION
     Dosage: UNK
     Dates: start: 20130731
  9. APREPITANT [Concomitant]
     Indication: NAUSEA
     Dosage: UNK
     Dates: start: 20130731
  10. METHOCLOPRAMIDE [Concomitant]
     Indication: NAUSEA
     Dosage: UNK
     Dates: start: 20130731
  11. ARANESP [Concomitant]
     Indication: ANAEMIA
     Dosage: UNK
     Dates: start: 20130820

REACTIONS (1)
  - Aortic thrombosis [Recovered/Resolved with Sequelae]
